FAERS Safety Report 10231637 (Version 1)
Quarter: 2014Q2

REPORT INFORMATION
  Report Type: Spontaneous
  Country: IT (occurrence: IT)
  Receive Date: 20140611
  Receipt Date: 20140611
  Transmission Date: 20141212
  Serious: Yes (Hospitalization)
  Sender: FDA-Public Use
  Company Number: PHHY2014IT070733

PATIENT
  Age: 54 Year
  Sex: Male

DRUGS (6)
  1. VALSARTAN [Suspect]
     Indication: HYPERTENSION
     Dosage: 160 MG, TOT
     Route: 048
     Dates: start: 20140218, end: 20140218
  2. ANSIOLIN [Suspect]
     Dosage: 1 DF, 1 POSOLOGIC UNIT, TOT
     Route: 048
     Dates: start: 20140218, end: 20140218
  3. VENTOLIN//SALBUTAMOL [Concomitant]
     Dosage: UNK UKN, UNK
  4. LOPRESOR [Concomitant]
     Dosage: UNK UKN, UNK
     Route: 048
  5. RAMIPRIL [Concomitant]
     Dosage: UNK UKN, UNK
     Route: 048
  6. BISOPROLOL [Concomitant]
     Dosage: UNK UKN, UNK
     Route: 048

REACTIONS (2)
  - Urticaria [Recovered/Resolved]
  - Asthmatic crisis [Recovered/Resolved]
